FAERS Safety Report 6278096-4 (Version None)
Quarter: 2009Q3

REPORT INFORMATION
  Report Type: 
  Country: None (occurrence: None)
  Receive Date: 20090722
  Receipt Date: 20090720
  Transmission Date: 20100115
  Serious: Yes (Hospitalization)
  Sender: FDA-Public Use
  Company Number: TW-ROXANE LABORATORIES, INC.-2009-RO-00722RO

PATIENT
  Age: 33 Year
  Sex: Male

DRUGS (3)
  1. METHADONE HCL [Suspect]
     Indication: DRUG DEPENDENCE
     Dosage: 150 MG
  2. HEROIN [Suspect]
     Indication: DRUG DEPENDENCE
     Route: 042
  3. NALOXONE [Suspect]
     Indication: DRUG TOXICITY

REACTIONS (5)
  - ACUTE RESPIRATORY FAILURE [None]
  - DRUG TOXICITY [None]
  - ISCHAEMIC STROKE [None]
  - RENAL FAILURE ACUTE [None]
  - RHABDOMYOLYSIS [None]
